FAERS Safety Report 4814851-2 (Version None)
Quarter: 2005Q4

REPORT INFORMATION
  Report Type: 
  Country: None (occurrence: None)
  Receive Date: 20051027
  Receipt Date: 20051027
  Transmission Date: 20060501
  Serious: Yes (Hospitalization)
  Sender: FDA-Public Use
  Company Number: None

PATIENT
  Sex: Male
  Weight: 107 kg

DRUGS (5)
  1. AVASTIN [Suspect]
     Indication: COLON CANCER
     Dosage: 5MG/KG IV
     Route: 042
     Dates: start: 20050603, end: 20050922
  2. OXALIPLATIN (65MG/M2) D1 OF 14D CYCLE [Suspect]
     Indication: COLON CANCER
     Dosage: 65 IV
     Route: 042
     Dates: start: 20050603, end: 20050922
  3. FLUOROURACIL [Suspect]
     Indication: COLON CANCER
     Dosage: 320 IV BOLUS
     Route: 040
     Dates: start: 20050603, end: 20050922
  4. FLUOROURACIL [Suspect]
     Indication: COLON CANCER
     Dosage: 1920 CI IV
     Route: 042
     Dates: start: 20050603, end: 20050922
  5. ERLOTINIB [Suspect]
     Indication: COLON CANCER
     Dosage: 100MG DAILY ORAL
     Route: 048
     Dates: start: 20050603

REACTIONS (2)
  - ANAEMIA [None]
  - GASTROINTESTINAL HAEMORRHAGE [None]
